FAERS Safety Report 5033477-1 (Version None)
Quarter: 2006Q2

REPORT INFORMATION
  Report Type: 
  Country: None (occurrence: None)
  Receive Date: 20060621
  Receipt Date: 20060609
  Transmission Date: 20061013
  Serious: Yes (Hospitalization, Other)
  Sender: FDA-Public Use
  Company Number: 233657K06USA

PATIENT
  Age: 66 Year
  Sex: Female
  Weight: 90.7194 kg

DRUGS (11)
  1. REBIF [Suspect]
     Indication: MULTIPLE SCLEROSIS
     Dosage: 44 MCG, 3 IN 1 WEEKS, SUBCUTANEOUS
     Route: 058
     Dates: start: 20040122
  2. ASPIRIN [Concomitant]
  3. FLOMAX (MORNIFLUMATE) [Concomitant]
  4. LIBRAX [Concomitant]
  5. LOMITAL (LOMOTIL) [Concomitant]
  6. COZAAR [Concomitant]
  7. METOPROLOL SUCCINATE [Concomitant]
  8. NEURONTIN [Concomitant]
  9. RANITIDINE [Concomitant]
  10. ZOCOR [Concomitant]
  11. PLAVIX [Concomitant]

REACTIONS (5)
  - ACTIVITIES OF DAILY LIVING IMPAIRED [None]
  - CORONARY ARTERIAL STENT INSERTION [None]
  - DYSPNOEA [None]
  - MOOD SWINGS [None]
  - SURGICAL PROCEDURE REPEATED [None]
